FAERS Safety Report 24835219 (Version 6)
Quarter: 2025Q1

REPORT INFORMATION
  Report Type: Spontaneous
  Country: AR (occurrence: AR)
  Receive Date: 20250113
  Receipt Date: 20250324
  Transmission Date: 20250408
  Serious: Yes (Other)
  Sender: MYLAN
  Company Number: AR-MYLANLABS-2025M1002652

PATIENT
  Age: 17 Year
  Sex: Female

DRUGS (3)
  1. CLOZAPINE [Suspect]
     Active Substance: CLOZAPINE
     Indication: Product used for unknown indication
     Dosage: 525 MILLIGRAM, QD
     Dates: start: 20241031
  2. VALPROATE MAGNESIUM [Concomitant]
     Active Substance: VALPROATE MAGNESIUM
     Indication: Impulsive behaviour
     Dosage: 1200 MILLIGRAM, QD
  3. TOPIRAMATE [Concomitant]
     Active Substance: TOPIRAMATE
     Indication: Increased appetite
     Dosage: 50 MILLIGRAM, QD

REACTIONS (2)
  - Neutropenia [Recovered/Resolved]
  - Off label use [Unknown]

NARRATIVE: CASE EVENT DATE: 20241031
